FAERS Safety Report 13195506 (Version 2)
Quarter: 2017Q1

REPORT INFORMATION
  Report Type: Spontaneous
  Country: US (occurrence: US)
  Receive Date: 20170208
  Receipt Date: 20170307
  Transmission Date: 20170428
  Serious: No
  Sender: FDA-Public Use
  Company Number: US-ALEXION PHARMACEUTICALS INC.-A201701094

PATIENT
  Sex: Male

DRUGS (1)
  1. SOLIRIS [Suspect]
     Active Substance: ECULIZUMAB
     Indication: PAROXYSMAL NOCTURNAL HAEMOGLOBINURIA
     Dosage: 600 MG, QW (FOR 5 WEEKS)
     Route: 042

REACTIONS (4)
  - Inappropriate schedule of drug administration [Unknown]
  - Blood creatinine increased [Not Recovered/Not Resolved]
  - Coombs test positive [Unknown]
  - Platelet count abnormal [Unknown]
